FAERS Safety Report 4488091-3 (Version None)
Quarter: 2004Q4

REPORT INFORMATION
  Report Type: 
  Country: None (occurrence: None)
  Receive Date: 20041028
  Receipt Date: 20041019
  Transmission Date: 20050328
  Serious: Yes (Hospitalization)
  Sender: FDA-Public Use
  Company Number: 4439

PATIENT
  Age: 73 Year
  Sex: Male

DRUGS (7)
  1. HYCAMTIN [Suspect]
     Indication: SMALL CELL LUNG CANCER STAGE UNSPECIFIED
     Dosage: .78MG PER DAY
     Route: 042
     Dates: start: 20040623, end: 20040627
  2. VOGLIBOSE [Concomitant]
     Dosage: .6MG PER DAY
     Route: 048
     Dates: start: 20011201
  3. NICARDIPINE HCL [Concomitant]
     Dosage: 20MG PER DAY
     Route: 048
     Dates: start: 20011201
  4. CANDESARTAN CILEXETIL [Concomitant]
     Dosage: 4MG PER DAY
     Route: 048
     Dates: start: 20031001
  5. FAMOTIDINE [Concomitant]
  6. TRIAZOLAM [Concomitant]
     Indication: HYPNOTHERAPY
     Dosage: .125MG PER DAY
     Route: 048
     Dates: start: 20011201
  7. ESTAZOLAM [Concomitant]
     Indication: HYPNOTHERAPY
     Dosage: 1MG PER DAY
     Route: 048
     Dates: start: 20011201

REACTIONS (4)
  - ASTHENIA [None]
  - BONE MARROW DEPRESSION [None]
  - DIZZINESS [None]
  - GAIT DISTURBANCE [None]
